FAERS Safety Report 9481933 (Version 1)
Quarter: 2013Q3

REPORT INFORMATION
  Report Type: Spontaneous
  Country: US (occurrence: None)
  Receive Date: 20130823
  Receipt Date: 20130823
  Transmission Date: 20140515
  Serious: Yes (Other)
  Sender: FDA-Public Use
  Company Number: 1844313

PATIENT
  Age: 38 Year
  Sex: Female
  Weight: 65.5 kg

DRUGS (3)
  1. PENTOSTATINE [Suspect]
     Indication: CHRONIC LYMPHOCYTIC LEUKAEMIA
     Dosage: 4 MG/M2 MILLIGRAM(S)/SQ. METER (1 DAY), INTRAVENOUS
     Dates: start: 20090323, end: 20090817
  2. RITUXIMAB [Suspect]
     Indication: CHRONIC LYMPHOCYTIC LEUKAEMIA
     Dosage: 375 MG/M2 MILLIGRAM(S)/SQ. METER (1 DAY), INTRAVENOUS
     Dates: start: 20090323, end: 20090817
  3. CYCLOPHOSPHAMIDE [Suspect]
     Indication: CHRONIC LYMPHOCYTIC LEUKAEMIA
     Dosage: 600 MG/M2 MILLIGRAM(S)/SQ. METER (1 DAY), INTRAVENOUS
     Dates: start: 20090323, end: 20090817

REACTIONS (2)
  - Bone pain [None]
  - Myalgia [None]
